FAERS Safety Report 6305681-3 (Version None)
Quarter: 2009Q3

REPORT INFORMATION
  Report Type: 
  Country: None (occurrence: None)
  Receive Date: 20090807
  Receipt Date: 20090728
  Transmission Date: 20100115
  Serious: Yes (Hospitalization)
  Sender: FDA-Public Use
  Company Number: FABR-1000825

PATIENT
  Age: 41 Year
  Sex: Male
  Weight: 65 kg

DRUGS (2)
  1. FABRAZYME [Suspect]
     Indication: FABRY'S DISEASE
     Dosage: 1 MG/KG, Q4W, INTRAVENOUS
     Route: 042
     Dates: start: 20030702
  2. UNSPECIFIED IMMUNOSUPPRESSANTS [Concomitant]

REACTIONS (6)
  - CELLULITIS [None]
  - CHEST PAIN [None]
  - KIDNEY TRANSPLANT REJECTION [None]
  - LOCALISED INFECTION [None]
  - RENAL TRANSPLANT [None]
  - TOE AMPUTATION [None]
